FAERS Safety Report 15218661 (Version 1)
Quarter: 2018Q3

REPORT INFORMATION
  Report Type: Spontaneous
  Country: DE (occurrence: DE)
  Receive Date: 20180731
  Receipt Date: 20180731
  Transmission Date: 20181010
  Serious: Yes (Other)
  Sender: FDA-Public Use
  Company Number: DE-EDENBRIDGE PHARMACEUTICALS, LLC-DE-2018EDE000236

PATIENT
  Age: 75 Year
  Sex: Female

DRUGS (2)
  1. PREDNISOLONE SODIUM PHOSPHATE. [Suspect]
     Active Substance: PREDNISOLONE SODIUM PHOSPHATE
     Indication: PRODUCT USED FOR UNKNOWN INDICATION
     Dosage: UNK
     Route: 048
  2. PREDNISOLONE SODIUM PHOSPHATE. [Suspect]
     Active Substance: PREDNISOLONE SODIUM PHOSPHATE
     Dosage: 130 MG, UNK (CUMULATIVE DOSE)
     Route: 048

REACTIONS (1)
  - Acute generalised exanthematous pustulosis [Unknown]
